FAERS Safety Report 4500166-9 (Version None)
Quarter: 2004Q4

REPORT INFORMATION
  Report Type: 
  Country: None (occurrence: None)
  Receive Date: 20041112
  Receipt Date: 20040917
  Transmission Date: 20050328
  Serious: Yes (Hospitalization, Other)
  Sender: FDA-Public Use
  Company Number: PHBS2004JP12528

PATIENT
  Age: 23 Year
  Sex: Female
  Weight: 60 kg

DRUGS (8)
  1. TEGRETOL [Suspect]
     Indication: EPILEPSY
     Dosage: 370 MG/DAY
     Route: 048
     Dates: start: 19970812, end: 20040219
  2. TEGRETOL [Suspect]
     Dosage: 400 MG/DAY
     Route: 048
     Dates: start: 20040220, end: 20040514
  3. TEGRETOL [Suspect]
     Dosage: 300 MG/DAY
     Route: 048
     Dates: start: 20040515, end: 20040521
  4. TEGRETOL [Suspect]
     Dosage: 200 MG/DAY
     Route: 048
     Dates: start: 20040522, end: 20040601
  5. TEGRETOL [Suspect]
     Dosage: 150 MG/DAY
     Route: 048
     Dates: start: 20040602
  6. MYSTAN [Concomitant]
     Dosage: 4 MG/DAY
     Route: 048
     Dates: start: 20011009
  7. SELENICA-R [Concomitant]
     Indication: EPILEPSY
     Route: 048
     Dates: start: 20040201, end: 20040101
  8. ALEVIATIN [Concomitant]
     Indication: EPILEPSY
     Route: 048
     Dates: start: 20040201, end: 20040101

REACTIONS (17)
  - ALANINE AMINOTRANSFERASE INCREASED [None]
  - ANOREXIA [None]
  - ANTICONVULSANT DRUG LEVEL BELOW THERAPEUTIC [None]
  - ASPARTATE AMINOTRANSFERASE INCREASED [None]
  - BLOOD ALKALINE PHOSPHATASE INCREASED [None]
  - CONDITION AGGRAVATED [None]
  - CONVULSION [None]
  - DECREASED ACTIVITY [None]
  - DEPRESSED LEVEL OF CONSCIOUSNESS [None]
  - ECCHYMOSIS [None]
  - FALL [None]
  - GAIT DISTURBANCE [None]
  - GAMMA-GLUTAMYLTRANSFERASE INCREASED [None]
  - HYPONATRAEMIA [None]
  - INAPPROPRIATE ANTIDIURETIC HORMONE SECRETION [None]
  - LIVER DISORDER [None]
  - MENINGEOMAS SURGERY [None]
